FAERS Safety Report 5706570-5 (Version None)
Quarter: 2008Q2

REPORT INFORMATION
  Report Type: 
  Country: None (occurrence: None)
  Receive Date: 20080414
  Receipt Date: 20080403
  Transmission Date: 20081010
  Serious: Yes (Other)
  Sender: FDA-Public Use
  Company Number: CIO08002440

PATIENT
  Age: 20 Year
  Sex: Female
  Weight: 95.2 kg

DRUGS (3)
  1. NYQUIL COLD/FLU, PSEUDOEPHEDRINE FREE(PARACETAMOL 325 MG, DEXTROMETHOR [Suspect]
     Indication: NASOPHARYNGITIS
     Dosage: 2 LIQCAP, 1 ONLY, ORAL
     Route: 048
     Dates: start: 20080210, end: 20080210
  2. ADVIL [Suspect]
     Dosage: 2 TABLET, 1 ONLY FOR 1 DAY, ORAL
     Route: 048
     Dates: start: 20080210, end: 20080210
  3. ALKA-SELTZER PLUS /01082701/ (PHENYLPROPANOLAMINE BITARTRATE, CHLORPHE [Suspect]
     Indication: NASOPHARYNGITIS
     Dosage: 2 TABLET, 1 ONLY FOR 1 DAY, ORAL
     Route: 048
     Dates: start: 20080210, end: 20080210

REACTIONS (6)
  - AGGRESSION [None]
  - DRUG ADMINISTRATION ERROR [None]
  - DRUG HYPERSENSITIVITY [None]
  - DYSKINESIA [None]
  - LOSS OF CONSCIOUSNESS [None]
  - TREMOR [None]
